FAERS Safety Report 9373021 (Version 1)
Quarter: 2013Q2

REPORT INFORMATION
  Report Type: Spontaneous
  Country: DK (occurrence: DK)
  Receive Date: 20130627
  Receipt Date: 20130627
  Transmission Date: 20140414
  Serious: Yes (Other)
  Sender: FDA-Public Use
  Company Number: DK-TEVA-414082ISR

PATIENT
  Age: 71 Year
  Sex: Male

DRUGS (2)
  1. GABAPENTIN [Suspect]
     Indication: MUSCLE SPASMS
     Dosage: UNK
     Dates: start: 20100705, end: 201010
  2. GABAPENTIN [Suspect]
     Indication: SENSORY DISTURBANCE

REACTIONS (6)
  - Off label use [Unknown]
  - Enamel anomaly [Unknown]
  - Loose tooth [Unknown]
  - Dental caries [Unknown]
  - Tooth disorder [Unknown]
  - Tooth fracture [Unknown]
